FAERS Safety Report 6454268-0 (Version None)
Quarter: 2009Q4

REPORT INFORMATION
  Report Type: 
  Country: None (occurrence: None)
  Receive Date: 20091124
  Receipt Date: 20091112
  Transmission Date: 20100525
  Serious: Yes (Hospitalization)
  Sender: FDA-Public Use
  Company Number: DE-GENENTECH-294647

PATIENT
  Sex: Female

DRUGS (6)
  1. AVASTIN [Suspect]
     Indication: BREAST CANCER
     Dosage: 1110 MG, Q3W
     Route: 042
     Dates: start: 20090202
  2. TRASTUZUMAB [Suspect]
     Indication: BREAST CANCER
     Dosage: 444 MG, Q3W
     Route: 042
     Dates: start: 20090202
  3. CARBOPLATIN [Suspect]
     Indication: BREAST CANCER
     Dosage: 572.7 MG, Q3W
     Route: 042
     Dates: start: 20090205
  4. DOCETAXEL [Suspect]
     Indication: BREAST CANCER
     Dosage: 140.25 MG, Q3W
     Route: 042
     Dates: start: 20090202
  5. URACID [Concomitant]
     Indication: DRUG USE FOR UNKNOWN INDICATION
     Dosage: UNK
     Dates: start: 20090430, end: 20090507
  6. CIPROFLOXACIN [Concomitant]
     Indication: DRUG USE FOR UNKNOWN INDICATION
     Dosage: UNK
     Dates: start: 20090502, end: 20090504

REACTIONS (1)
  - ERYSIPELAS [None]
